FAERS Safety Report 6959217-4 (Version None)
Quarter: 2010Q3

REPORT INFORMATION
  Report Type: 
  Country: None (occurrence: None)
  Receive Date: 20100831
  Receipt Date: 20100824
  Transmission Date: 20110219
  Serious: Yes (Hospitalization, Other)
  Sender: FDA-Public Use
  Company Number: US-AMGEN-QUU433523

PATIENT
  Sex: Female

DRUGS (2)
  1. ENBREL [Suspect]
     Indication: PSORIASIS
     Dates: start: 20100701, end: 20100817
  2. TRIAMCINOLONE [Concomitant]

REACTIONS (2)
  - DYSPNOEA [None]
  - INJECTION SITE REACTION [None]
